FAERS Safety Report 6818476-9 (Version None)
Quarter: 2010Q3

REPORT INFORMATION
  Report Type: 
  Country: None (occurrence: None)
  Receive Date: 20100706
  Receipt Date: 20080825
  Transmission Date: 20110219
  Serious: No
  Sender: FDA-Public Use
  Company Number: US-PFIZER INC-2008071130

PATIENT
  Sex: Male
  Weight: 76.2 kg

DRUGS (14)
  1. ZITHROMAX [Suspect]
     Indication: PHARYNGITIS STREPTOCOCCAL
     Dates: start: 20080823
  2. ZITHROMAX [Suspect]
     Indication: OROPHARYNGEAL PAIN
  3. ZITHROMAX [Suspect]
     Indication: NASOPHARYNGITIS
  4. NEPHLEX [Concomitant]
  5. CRESTOR [Concomitant]
  6. FUROSEMIDE [Concomitant]
  7. PLAVIX [Concomitant]
  8. GLYBURIDE [Concomitant]
  9. TAMSULOSIN HCL [Concomitant]
  10. ASPIRIN [Concomitant]
  11. NIFEDIPINE [Concomitant]
  12. TRAVATAN [Concomitant]
  13. COSOPT [Concomitant]
  14. ALPHAGAN [Concomitant]

REACTIONS (1)
  - ASTHENIA [None]
